FAERS Safety Report 8203020-4 (Version None)
Quarter: 2012Q1

REPORT INFORMATION
  Report Type: 
  Country: None (occurrence: None)
  Receive Date: 20120312
  Receipt Date: 20120301
  Transmission Date: 20120608
  Serious: Yes (Hospitalization)
  Sender: FDA-Public Use
  Company Number: IE-MEDIMMUNE-MEDI-0015115

PATIENT
  Sex: Male

DRUGS (4)
  1. SYNAGIS [Suspect]
     Route: 030
     Dates: start: 20110926, end: 20110926
  2. GLYCERIN THROAT SYRUP [Concomitant]
  3. IPRATROPIUM BROMIDE [Concomitant]
  4. ANTIBIOTICS (UNSPECIFIED) [Concomitant]

REACTIONS (2)
  - PYREXIA [None]
  - RESPIRATORY TRACT CONGESTION [None]
